FAERS Safety Report 7347904-8 (Version None)
Quarter: 2011Q1

REPORT INFORMATION
  Report Type: 
  Country: None (occurrence: None)
  Receive Date: 20110302
  Receipt Date: 20110224
  Transmission Date: 20110831
  Serious: Yes (Life-Threatening)
  Sender: FDA-Public Use
  Company Number: 2011SP008830

PATIENT
  Age: 44 Year
  Sex: Female

DRUGS (2)
  1. CLARITIN [Suspect]
     Indication: PRODUCT USED FOR UNKNOWN INDICATION
     Dosage: 10 MG, QD, PO
     Route: 048
  2. VENTOLIN [Concomitant]

REACTIONS (2)
  - HYPERHIDROSIS [None]
  - MUSCULAR WEAKNESS [None]
